FAERS Safety Report 9628130 (Version 2)
Quarter: 2014Q1

REPORT INFORMATION
  Report Type: Report from Study
  Country: GB (occurrence: GB)
  Receive Date: 20131017
  Receipt Date: 20140327
  Transmission Date: 20141002
  Serious: Yes (Hospitalization)
  Sender: FDA-Public Use
  Company Number: GB-MERCK-1310GBR006243

PATIENT
  Age: 47 Year
  Sex: Male
  Weight: 100 kg

DRUGS (15)
  1. BOCEPREVIR [Suspect]
     Dosage: 2400 MG
     Route: 048
     Dates: start: 20130709
  2. PEGASYS [Suspect]
     Dosage: 135 MICROGRAM, QW
     Route: 058
     Dates: start: 20130603, end: 20130610
  3. PEGASYS [Suspect]
     Dosage: 90 MICROGRAM, QW
     Route: 058
     Dates: start: 20130611, end: 20130626
  4. PEGASYS [Suspect]
     Dosage: 45 MICROGRAM, QW
     Route: 058
     Dates: start: 20130627
  5. COPEGUS [Suspect]
     Dosage: 800 MG, QD
     Route: 048
     Dates: start: 20130625, end: 20130722
  6. COPEGUS [Suspect]
     Dosage: 1200 MG, QD
     Dates: start: 20130603, end: 20130610
  7. COPEGUS [Suspect]
     Dosage: 1000 MG, QD
     Route: 048
     Dates: start: 20130611, end: 20130624
  8. COPEGUS [Suspect]
     Dosage: 1000 MG, QD
     Route: 048
     Dates: start: 20130723
  9. RAMIPRIL [Concomitant]
     Dosage: 5 MG, UNK
  10. INDAPAMIDE [Concomitant]
     Dosage: 2.5 MG, UNK
  11. MIRTAZAPINE [Concomitant]
     Indication: DEPRESSION
     Dosage: 45 MG, QD
     Route: 048
  12. MIRTAZAPINE [Concomitant]
     Dosage: 30 MG, QD
     Route: 048
  13. ZOPICLONE [Concomitant]
     Indication: INSOMNIA
     Dosage: 7.5 MG, QD
     Route: 048
  14. QUETIAPINE FUMARATE [Concomitant]
     Indication: DEPRESSION
     Dosage: 200 MG, QD
     Route: 048
  15. OMEPRAZOLE [Concomitant]
     Indication: GASTRIC ULCER
     Dosage: 20 MG, QD
     Route: 048

REACTIONS (1)
  - Abdominal pain [Recovered/Resolved]
